FAERS Safety Report 4829958-3 (Version None)
Quarter: 2005Q4

REPORT INFORMATION
  Report Type: 
  Country: None (occurrence: None)
  Receive Date: 20051115
  Receipt Date: 20051115
  Transmission Date: 20060501
  Serious: Yes (Life-Threatening, Hospitalization)
  Sender: FDA-Public Use
  Company Number: None

PATIENT
  Age: 54 Year
  Sex: Female
  Weight: 91 kg

DRUGS (3)
  1. TIZANIDINE TABLET ACORDA THERAPEUTICS [Suspect]
     Indication: NAUSEA
     Dosage: 4MG DAILY PO
     Route: 048
     Dates: end: 20051020
  2. TIZANIDINE TABLET ACORDA THERAPEUTICS [Suspect]
     Indication: RASH
     Dosage: 4MG DAILY PO
     Route: 048
     Dates: end: 20051020
  3. TIZANIDINE TABLET ACORDA THERAPEUTICS [Suspect]
     Indication: VOMITING
     Dosage: 4MG DAILY PO
     Route: 048
     Dates: end: 20051020

REACTIONS (10)
  - BLOOD AMYLASE INCREASED [None]
  - DIARRHOEA [None]
  - HEPATIC ENZYME INCREASED [None]
  - LIPASE INCREASED [None]
  - NAUSEA [None]
  - PYREXIA [None]
  - RASH [None]
  - SKIN BURNING SENSATION [None]
  - URTICARIA [None]
  - VOMITING [None]
